FAERS Safety Report 7983649-9 (Version None)
Quarter: 2011Q4

REPORT INFORMATION
  Report Type: 
  Country: None (occurrence: None)
  Receive Date: 20111215
  Receipt Date: 20111208
  Transmission Date: 20120403
  Serious: Yes (Hospitalization, Other)
  Sender: FDA-Public Use
  Company Number: US-ASTRAZENECA-2011SE31746

PATIENT
  Age: 33 Year
  Sex: Female

DRUGS (5)
  1. TRAZIDONE [Concomitant]
  2. SEROQUEL XR [Suspect]
     Indication: BIPOLAR DISORDER
     Route: 048
  3. LAMICTAL [Concomitant]
  4. SEROQUEL XR [Suspect]
     Route: 048
  5. PREVASC [Concomitant]

REACTIONS (11)
  - FEELING ABNORMAL [None]
  - MENTAL IMPAIRMENT [None]
  - DRUG DOSE OMISSION [None]
  - AMNESIA [None]
  - INCOHERENT [None]
  - MEDICAL DEVICE COMPLICATION [None]
  - PAIN [None]
  - POST PROCEDURAL INFECTION [None]
  - MALAISE [None]
  - FEAR [None]
  - SOMNOLENCE [None]
